FAERS Safety Report 9180550 (Version 5)
Quarter: 2014Q4

REPORT INFORMATION
  Report Type: Spontaneous
  Country: JP (occurrence: JP)
  Receive Date: 20130322
  Receipt Date: 20141029
  Transmission Date: 20150529
  Serious: Yes (Life-Threatening, Hospitalization, Other)
  Sender: FDA-Public Use
  Company Number: JP-009507513-2010SP065579

PATIENT
  Age: 24 Year
  Sex: Female
  Weight: 71 kg

DRUGS (8)
  1. ROPION [Suspect]
     Active Substance: FLURBIPROFEN AXETIL
     Indication: ANALGESIC THERAPY
     Dosage: 50 MG, QD
     Route: 042
     Dates: start: 20101206, end: 20101206
  2. BRIDION INTRAVENOUS 200MG [Suspect]
     Active Substance: SUGAMMADEX
     Indication: NEUROMUSCULAR BLOCKADE REVERSAL
     Dosage: 200 MG, QD
     Route: 042
     Dates: start: 20101206, end: 20101206
  3. PROPOFOL. [Concomitant]
     Active Substance: PROPOFOL
     Indication: ANAESTHESIA PROCEDURE
     Dosage: 100 MG, QD^ 13:05
     Dates: start: 20101206, end: 20101206
  4. ULTIVA [Concomitant]
     Active Substance: REMIFENTANIL HYDROCHLORIDE
     Indication: ANAESTHESIA PROCEDURE
     Dosage: 1 MG, QD
     Dates: start: 20101206, end: 20101206
  5. ESLAX INTRAVENOUS 50MG/5.0ML [Concomitant]
     Active Substance: ROCURONIUM BROMIDE
     Indication: NEUROMUSCULAR BLOCKING THERAPY
     Dosage: STRENGTH:50MG/ 5.0ML  40 MG, QD; 13:05
     Route: 042
     Dates: start: 20101206, end: 20101206
  6. LIDOCAINE. [Suspect]
     Active Substance: LIDOCAINE
     Indication: PROPHYLAXIS
     Dosage: 60 MG, QD; 13:30
     Route: 042
     Dates: start: 20101206, end: 20101206
  7. FENTANYL. [Concomitant]
     Active Substance: FENTANYL
     Indication: ANAESTHESIA PROCEDURE
     Dosage: 2 ML, QD, 13:05
     Dates: start: 20101206, end: 20101206
  8. REMIFENTANIL HYDROCHLORIDE [Concomitant]
     Active Substance: REMIFENTANIL HYDROCHLORIDE

REACTIONS (4)
  - Oxygen saturation decreased [Recovered/Resolved]
  - Pulseless electrical activity [Unknown]
  - Resuscitation [Unknown]
  - Anaphylactic shock [Recovered/Resolved]

NARRATIVE: CASE EVENT DATE: 20101206
